FAERS Safety Report 24555758 (Version 2)
Quarter: 2024Q4

REPORT INFORMATION
  Report Type: Spontaneous
  Country: CA (occurrence: CA)
  Receive Date: 20241028
  Receipt Date: 20241107
  Transmission Date: 20250115
  Serious: No
  Sender: ELI LILLY AND COMPANY
  Company Number: CA-ELI_LILLY_AND_COMPANY-US202410018931

PATIENT
  Sex: Female

DRUGS (1)
  1. CYMBALTA [Suspect]
     Active Substance: DULOXETINE HYDROCHLORIDE
     Indication: Anxiety
     Dosage: 30 MG, UNKNOWN
     Route: 048

REACTIONS (4)
  - Photophobia [Not Recovered/Not Resolved]
  - Mydriasis [Not Recovered/Not Resolved]
  - Dyspepsia [Unknown]
  - Fatigue [Unknown]
